FAERS Safety Report 4650724-6 (Version None)
Quarter: 2005Q2

REPORT INFORMATION
  Report Type: 
  Country: None (occurrence: None)
  Receive Date: 20050429
  Receipt Date: 20050429
  Transmission Date: 20051028
  Serious: Yes (Life-Threatening, Hospitalization)
  Sender: FDA-Public Use
  Company Number: None

PATIENT
  Sex: Male
  Weight: 80.2867 kg

DRUGS (8)
  1. INFLIXIMAB    100 MG     CENTOCOR [Suspect]
     Indication: JUVENILE ARTHRITIS
     Dosage: 300 MG.   MONTHLY   INTRAVENOU
     Route: 042
     Dates: start: 20041203, end: 20050314
  2. AZATHIOPRINE [Suspect]
     Indication: SYSTEMIC LUPUS ERYTHEMATOSUS
     Dosage: 100 MG   DAILY   ORAL
     Route: 048
     Dates: start: 20030404, end: 20040329
  3. METHYLPREDNISOLONE [Concomitant]
  4. ALENDRONATE SODIUM [Concomitant]
  5. HYDROXYCHLOROQUINE SULFATE [Concomitant]
  6. NEXIUM [Concomitant]
  7. ACETAMINOPHEN [Concomitant]
  8. IBUPROFEN [Concomitant]

REACTIONS (4)
  - ACUTE PULMONARY HISTOPLASMOSIS [None]
  - HEPATIC FAILURE [None]
  - HEPATITIS TOXIC [None]
  - RASH MACULO-PAPULAR [None]
